FAERS Safety Report 8863031 (Version 1)
Quarter: 2012Q4

REPORT INFORMATION
  Report Type: Report from Study
  Country: CH (occurrence: CH)
  Receive Date: 20121026
  Receipt Date: 20121026
  Transmission Date: 20130627
  Serious: Yes (Hospitalization)
  Sender: FDA-Public Use
  Company Number: CH-BRISTOL-MYERS SQUIBB COMPANY-17049107

PATIENT
  Age: 69 Year
  Sex: Female
  Weight: 76 kg

DRUGS (6)
  1. PACLITAXEL [Suspect]
     Indication: OVARIAN CANCER
     Dosage: Inter:13Dec11
restarted:22Dec11-ong
Recent:09Dec11
     Route: 042
     Dates: start: 20111014
  2. CARBOPLATIN [Suspect]
     Indication: OVARIAN CANCER
     Dosage: 1 Df:6 AUC
recent:01Dec11
     Route: 042
     Dates: start: 20111014
  3. BEVACIZUMAB [Suspect]
     Indication: OVARIAN CANCER
     Dosage: recent:01Dec11
     Route: 042
     Dates: start: 20111104
  4. AMITRIPTYLINE [Suspect]
     Dates: start: 20111021, end: 20111216
  5. PANTOZOL [Concomitant]
     Dates: start: 20111021
  6. TEMESTA [Concomitant]
     Dates: start: 20111021

REACTIONS (2)
  - Dyspnoea [Recovered/Resolved]
  - Orthostatic hypotension [Recovered/Resolved]
